FAERS Safety Report 9042513 (Version 1)
Quarter: 2013Q1

REPORT INFORMATION
  Report Type: Report from Study
  Country: US (occurrence: US)
  Receive Date: 20130129
  Receipt Date: 20130129
  Transmission Date: 20140127
  Serious: No
  Sender: FDA-Public Use
  Company Number: US-ABBOTT-12P-163-0907237-00

PATIENT
  Age: 50 Year
  Sex: Female

DRUGS (7)
  1. HUMIRA 40 MG/0.8 ML PEN [Suspect]
     Indication: CROHN^S DISEASE
     Dates: start: 20120123
  2. PREDNISONE [Concomitant]
     Indication: CROHN^S DISEASE
  3. SULFASALAZINE [Concomitant]
     Indication: CROHN^S DISEASE
  4. LUNESTA [Concomitant]
     Indication: CROHN^S DISEASE
  5. MULTIVITAMINS [Concomitant]
     Indication: VITAMIN SUPPLEMENTATION
  6. VIT B [Concomitant]
     Indication: VITAMIN SUPPLEMENTATION
  7. CALCIUM [Concomitant]
     Indication: MINERAL SUPPLEMENTATION
     Dosage: DAILY

REACTIONS (2)
  - Tremor [Not Recovered/Not Resolved]
  - Injection site bruising [Unknown]
